FAERS Safety Report 18641577 (Version 1)
Quarter: 2020Q4

REPORT INFORMATION
  Report Type: Spontaneous
  Country: FR (occurrence: FR)
  Receive Date: 20201221
  Receipt Date: 20201221
  Transmission Date: 20210114
  Serious: Yes (Hospitalization)
  Sender: FDA-Public Use
  Company Number: FR-TEVA-2020-FR-1859257

PATIENT
  Age: 71 Year
  Sex: Female

DRUGS (5)
  1. MIRTAZAPINE. [Suspect]
     Active Substance: MIRTAZAPINE
     Indication: DEPRESSION
     Dosage: 15 MG
     Route: 048
     Dates: start: 20201106, end: 20201116
  2. VORICONAZOLE. [Suspect]
     Active Substance: VORICONAZOLE
     Indication: FUNGAL INFECTION
     Dosage: 200 MG
     Route: 048
     Dates: start: 20201105, end: 20201119
  3. LORATADINE. [Concomitant]
     Active Substance: LORATADINE
     Dosage: 10 MG
     Route: 048
     Dates: start: 20201106
  4. PANTOPRAZOLE [Suspect]
     Active Substance: PANTOPRAZOLE
     Indication: ABDOMINAL PAIN UPPER
     Dosage: 40 MG
     Route: 042
     Dates: start: 20201105, end: 20201116
  5. TEICOPLANINE MYLAN [Suspect]
     Active Substance: TEICOPLANIN
     Indication: BACTERIAL INFECTION
     Dosage: 200 MG
     Route: 042
     Dates: start: 20201103, end: 20201111

REACTIONS (1)
  - Rash maculo-papular [Recovering/Resolving]

NARRATIVE: CASE EVENT DATE: 20201113
